FAERS Safety Report 11868215 (Version 1)
Quarter: 2015Q4

REPORT INFORMATION
  Report Type: Spontaneous
  Country: GB (occurrence: GB)
  Receive Date: 20151224
  Receipt Date: 20151224
  Transmission Date: 20160305
  Serious: Yes (Hospitalization, Other)
  Sender: FDA-Public Use
  Company Number: GB-WATSON-2015-13622

PATIENT
  Age: 71 Year
  Sex: Female

DRUGS (3)
  1. CYCLOSPORINE (UNKNOWN) [Suspect]
     Active Substance: CYCLOSPORINE
     Indication: PUSTULAR PSORIASIS
     Dosage: 3 MG/KG, DAILY
     Route: 065
  2. MESALAZINE [Concomitant]
     Active Substance: MESALAMINE
     Indication: COLITIS ULCERATIVE
     Dosage: UNK
     Route: 065
  3. ACITRETIN. [Concomitant]
     Active Substance: ACITRETIN
     Indication: PSORIASIS
     Dosage: 10 MG, DAILY
     Route: 048

REACTIONS (3)
  - Pustular psoriasis [Recovered/Resolved]
  - Cytomegalovirus infection [Recovered/Resolved]
  - Condition aggravated [Recovered/Resolved]
